FAERS Safety Report 11317675 (Version 4)
Quarter: 2017Q2

REPORT INFORMATION
  Report Type: Spontaneous
  Country: FR (occurrence: FR)
  Receive Date: 20150728
  Receipt Date: 20170411
  Transmission Date: 20170829
  Serious: Yes (Hospitalization)
  Sender: FDA-Public Use
  Company Number: FR-SA-2015SA108983

PATIENT
  Age: 79 Year
  Sex: Male
  Weight: 65 kg

DRUGS (5)
  1. CRIZOTINIB [Concomitant]
     Active Substance: CRIZOTINIB
     Indication: GLIOBLASTOMA
     Dosage: 250 MG TWICE DAILY CYCLIC
     Route: 048
     Dates: start: 20150526, end: 20150526
  2. LOVENOX [Suspect]
     Active Substance: ENOXAPARIN SODIUM
     Indication: THROMBOSIS
     Dosage: START DATE: 20-MAY-2015
     Route: 058
  3. LOVENOX [Suspect]
     Active Substance: ENOXAPARIN SODIUM
     Indication: THROMBOSIS
     Dosage: START DATE: 20-MAY-2015
     Route: 058
     Dates: end: 20150528
  4. CRIZOTINIB [Concomitant]
     Active Substance: CRIZOTINIB
     Indication: GLIOBLASTOMA
     Dosage: 250 MG TWICE DAILY CYCLIC
     Route: 048
     Dates: end: 201507
  5. CRIZOTINIB [Concomitant]
     Active Substance: CRIZOTINIB
     Indication: GLIOBLASTOMA
     Dosage: 250 MG TWICE DAILY CYCLIC
     Route: 048
     Dates: start: 20150528, end: 20150528

REACTIONS (7)
  - Tumour haemorrhage [Recovered/Resolved]
  - Somnolence [Unknown]
  - Electrocardiogram abnormal [Unknown]
  - Venous thrombosis [Unknown]
  - Fall [Recovered/Resolved]
  - Hemiparesis [Recovered/Resolved]
  - Dyspnoea [Unknown]

NARRATIVE: CASE EVENT DATE: 20150518
